FAERS Safety Report 11130249 (Version 1)
Quarter: 2015Q2

REPORT INFORMATION
  Report Type: Spontaneous
  Country: US (occurrence: US)
  Receive Date: 20150522
  Receipt Date: 20150522
  Transmission Date: 20150821
  Serious: Yes (Other)
  Sender: FDA-Public Use
  Company Number: US-CIPLA LTD.-2015US04063

PATIENT

DRUGS (4)
  1. VINCRISTINE [Suspect]
     Active Substance: VINCRISTINE
     Indication: NEOPLASM
     Dosage: 1.5 MG/M2 (2 MG MAXIMUM TOTAL DOSE) ON DAYS 1 AND 8 OF EACH 21 DAY CYCLE
     Route: 042
  2. BEVACIZUMAB [Suspect]
     Active Substance: BEVACIZUMAB
     Indication: NEOPLASM
     Dosage: 15MG/KG ON DAY 1 OVER 90 MIN DURING CYCLE 1, OVER 60 MIN IN CYCLE 2, OVER 30 MIN FROM CYCLE 3 ONWARD
     Route: 042
  3. TEMOZOLOMIDE. [Suspect]
     Active Substance: TEMOZOLOMIDE
     Indication: NEOPLASM
     Dosage: 100MG/M2 ON DAYS 1-5 OF EACH 21 DAY CYCLE
     Route: 048
  4. IRINOTECAN [Suspect]
     Active Substance: IRINOTECAN
     Indication: NEOPLASM
     Dosage: 30 MG/M2 (MAXIMUM 60 MG/DAY) OR 50 MG/M2 (MAXIMUM 100MG/DAY) ON DAYS 1-5 OF EACH 21 DAY CYCLE
     Route: 042

REACTIONS (1)
  - Hypoalbuminaemia [Unknown]
